FAERS Safety Report 20415846 (Version 1)
Quarter: 2022Q1

REPORT INFORMATION
  Report Type: Spontaneous
  Country: US (occurrence: US)
  Receive Date: 20220202
  Receipt Date: 20220202
  Transmission Date: 20220423
  Serious: No
  Sender: FDA-Public Use
  Company Number: US-Accord-243614

PATIENT
  Age: 72 Year
  Sex: Female

DRUGS (4)
  1. ARIPIPRAZOLE [Suspect]
     Active Substance: ARIPIPRAZOLE
     Indication: Bipolar disorder
     Dosage: STRENGTH: 10MG
  2. LAMOTRIGINE [Concomitant]
     Active Substance: LAMOTRIGINE
     Dosage: STRENGTH: 5MG
  3. SERTRALINE [Concomitant]
     Active Substance: SERTRALINE HYDROCHLORIDE
     Dosage: STRENGTH: 2.5MG
  4. BENZTROPINE [Concomitant]
     Active Substance: BENZTROPINE

REACTIONS (6)
  - Muscle twitching [Unknown]
  - Dysphagia [Unknown]
  - Mastication disorder [Unknown]
  - Gait disturbance [Unknown]
  - Reduced facial expression [Unknown]
  - Mobility decreased [Unknown]
